FAERS Safety Report 17689824 (Version 2)
Quarter: 2020Q4

REPORT INFORMATION
  Report Type: Report from Study
  Country: US (occurrence: US)
  Receive Date: 20200421
  Receipt Date: 20201127
  Transmission Date: 20210113
  Serious: Yes (Other)
  Sender: FDA-Public Use
  Company Number: NVSC2020US104936

PATIENT
  Sex: Male

DRUGS (1)
  1. PROMACTA [Suspect]
     Active Substance: ELTROMBOPAG OLAMINE
     Indication: IMMUNE THROMBOCYTOPENIA
     Dosage: 25 MG, QD
     Route: 065

REACTIONS (5)
  - Neuropathy peripheral [Unknown]
  - Grip strength decreased [Not Recovered/Not Resolved]
  - Arthralgia [Unknown]
  - Carpal tunnel syndrome [Unknown]
  - Muscular weakness [Unknown]
